FAERS Safety Report 11247008 (Version 1)
Quarter: 2015Q3

REPORT INFORMATION
  Report Type: Spontaneous
  Country: US (occurrence: US)
  Receive Date: 20150708
  Receipt Date: 20150708
  Transmission Date: 20151125
  Serious: No
  Sender: FDA-Public Use
  Company Number: US-TEVA-505187USA

PATIENT
  Sex: Female

DRUGS (3)
  1. CHLORDIAZEPOXIDE [Suspect]
     Active Substance: CHLORDIAZEPOXIDE
     Dosage: 30 MILLIGRAM DAILY;
     Route: 048
  2. NEURONTIN [Concomitant]
     Active Substance: GABAPENTIN
  3. CHLORDIAZEPOXIDE [Suspect]
     Active Substance: CHLORDIAZEPOXIDE
     Dosage: 10 MILLIGRAM DAILY;
     Route: 065

REACTIONS (3)
  - Malaise [Unknown]
  - Dizziness [Recovered/Resolved]
  - Wrong technique in product usage process [Unknown]
